FAERS Safety Report 7532017-2 (Version None)
Quarter: 2011Q2

REPORT INFORMATION
  Report Type: 
  Country: None (occurrence: None)
  Receive Date: 20110608
  Receipt Date: 20110524
  Transmission Date: 20111010
  Serious: No
  Sender: FDA-Public Use
  Company Number: US-B.I. PHARMACEUTICALS,INC./RIDGEFIELD-2011-BP-03808BP

PATIENT
  Sex: Male

DRUGS (13)
  1. PRADAXA [Suspect]
     Indication: ANTICOAGULANT THERAPY
  2. FUROSEMIDE [Concomitant]
  3. AMLODIPINE BESYLATE [Concomitant]
  4. LIPITOR [Concomitant]
     Dosage: 40 MG
     Dates: start: 20100625
  5. LISINOPRIL [Concomitant]
     Dosage: 40 MG
     Dates: start: 20100625
  6. METOPROLOL SUCCINATE [Concomitant]
     Dosage: 25 MG
     Dates: start: 20100625
  7. NORVASC [Concomitant]
     Dosage: 10 MG
     Dates: start: 20100625
  8. PRADAXA [Suspect]
     Indication: ATRIAL FIBRILLATION
     Dosage: 300 MG
     Route: 048
     Dates: start: 20101210, end: 20110207
  9. PRADAXA [Suspect]
  10. PLAVIX [Concomitant]
     Dosage: 75 MG
     Dates: start: 20100625
  11. GLIMEPIRIDE [Concomitant]
  12. HYDRALAZINE HCL [Concomitant]
  13. METFORMIN HCL [Concomitant]

REACTIONS (4)
  - DRY SKIN [None]
  - EYE SWELLING [None]
  - PRURITUS [None]
  - OEDEMA PERIPHERAL [None]
